FAERS Safety Report 18673340 (Version 2)
Quarter: 2022Q1

REPORT INFORMATION
  Report Type: Spontaneous
  Country: US (occurrence: US)
  Receive Date: 20201229
  Receipt Date: 20220330
  Transmission Date: 20220423
  Serious: Yes (Hospitalization)
  Sender: FDA-Public Use
  Company Number: US-JNJFOC-20201244421

PATIENT
  Age: 51 Year
  Sex: Male

DRUGS (2)
  1. REMICADE [Suspect]
     Active Substance: INFLIXIMAB
     Indication: Proctitis
     Route: 042
  2. PREDNISONE [Concomitant]
     Active Substance: PREDNISONE

REACTIONS (4)
  - Vanishing bile duct syndrome [Recovering/Resolving]
  - Drug-induced liver injury [Unknown]
  - Off label use [Unknown]
  - Product use in unapproved indication [Unknown]
